FAERS Safety Report 24551461 (Version 1)
Quarter: 2024Q4

REPORT INFORMATION
  Report Type: Spontaneous
  Country: CN (occurrence: CN)
  Receive Date: 20241026
  Receipt Date: 20241026
  Transmission Date: 20250115
  Serious: Yes (Other)
  Sender: AUROBINDO
  Company Number: CN-AUROBINDO-AUR-APL-2024-051239

PATIENT
  Age: 49 Year
  Sex: Female

DRUGS (4)
  1. PANTOPRAZOLE SODIUM [Suspect]
     Active Substance: PANTOPRAZOLE SODIUM
     Indication: Helicobacter infection
     Dosage: 40 MILLIGRAM, TWO TIMES A DAY
     Route: 048
     Dates: start: 20240912, end: 20240926
  2. FURAZOLIDONE [Suspect]
     Active Substance: FURAZOLIDONE
     Indication: Helicobacter infection
     Dosage: 0.1 GRAM, TWO TIMES A DAY
     Route: 048
     Dates: start: 20240912, end: 20240926
  3. DOXYCYCLINE [Suspect]
     Active Substance: DOXYCYCLINE
     Indication: Helicobacter infection
     Dosage: 0.1 GRAM, TWO TIMES A DAY
     Route: 048
     Dates: start: 20240912, end: 20240926
  4. BISMUTH [Suspect]
     Active Substance: BISMUTH
     Indication: Helicobacter infection
     Dosage: 0.2 GRAM, TWO TIMES A DAY
     Route: 048
     Dates: start: 20240912, end: 20240926

REACTIONS (1)
  - Drug eruption [Recovering/Resolving]

NARRATIVE: CASE EVENT DATE: 20240924
